FAERS Safety Report 17303879 (Version 5)
Quarter: 2020Q1

REPORT INFORMATION
  Report Type: Spontaneous
  Country: US (occurrence: US)
  Receive Date: 20200122
  Receipt Date: 20200213
  Transmission Date: 20200409
  Serious: Yes (Hospitalization, Other)
  Sender: FDA-Public Use
  Company Number: US-ACTELION-A-NJ2018-179608

PATIENT
  Age: 75 Year
  Sex: Female
  Weight: 115.65 kg

DRUGS (6)
  1. OPSUMIT [Suspect]
     Active Substance: MACITENTAN
     Indication: PULMONARY ARTERIAL HYPERTENSION
     Dosage: 10 MG, QD
     Route: 048
  2. BUMETANIDE. [Concomitant]
     Active Substance: BUMETANIDE
  3. UPTRAVI [Suspect]
     Active Substance: SELEXIPAG
     Indication: PULMONARY ARTERIAL HYPERTENSION
     Route: 048
  4. UPTRAVI [Suspect]
     Active Substance: SELEXIPAG
     Dosage: 200 MCG, BID
     Route: 048
  5. ADEMPAS [Concomitant]
     Active Substance: RIOCIGUAT
  6. WARFARIN [Concomitant]
     Active Substance: WARFARIN

REACTIONS (13)
  - International normalised ratio increased [Unknown]
  - Dyspnoea [Recovering/Resolving]
  - Gastric ulcer [Unknown]
  - Transfusion [Unknown]
  - Hypotension [Not Recovered/Not Resolved]
  - Constipation [Not Recovered/Not Resolved]
  - Gastric haemorrhage [Unknown]
  - Asthenia [Not Recovered/Not Resolved]
  - Abdominal pain upper [Unknown]
  - Headache [Recovered/Resolved]
  - Oedema peripheral [Recovering/Resolving]
  - Chest pain [Recovered/Resolved]
  - Pain in extremity [Unknown]

NARRATIVE: CASE EVENT DATE: 20180919
